FAERS Safety Report 5116875-7 (Version None)
Quarter: 2006Q3

REPORT INFORMATION
  Report Type: 
  Country: None (occurrence: None)
  Receive Date: 20060925
  Receipt Date: 20060912
  Transmission Date: 20061208
  Serious: Yes (Hospitalization, Other)
  Sender: FDA-Public Use
  Company Number: 2005154328

PATIENT
  Age: 40 Year
  Sex: Male
  Weight: 111.1313 kg

DRUGS (1)
  1. BEXTRA [Suspect]
     Indication: ARTHRITIS
     Dates: start: 20020101, end: 20040101

REACTIONS (3)
  - CARDIAC ARREST [None]
  - CARDIAC DISORDER [None]
  - CORONARY ARTERY OCCLUSION [None]
